FAERS Safety Report 6428233-3 (Version None)
Quarter: 2009Q4

REPORT INFORMATION
  Report Type: 
  Country: None (occurrence: None)
  Receive Date: 20091105
  Receipt Date: 20080530
  Transmission Date: 20100525
  Serious: Yes (Hospitalization)
  Sender: FDA-Public Use
  Company Number: FR-PFIZER INC-2009264784

PATIENT
  Age: 64 Year
  Sex: Male

DRUGS (10)
  1. EPIRUBICIN HCL [Suspect]
     Indication: GASTRIC CANCER
  2. CISPLATIN [Suspect]
     Indication: GASTRIC CANCER
  3. CAPECITABINE [Suspect]
     Indication: GASTRIC CANCER
  4. FORLAX [Concomitant]
     Indication: CONSTIPATION
     Dosage: 1 DF, 1X/DAY
     Route: 048
     Dates: start: 20070725
  5. ZOLPIDEM TARTRATE [Concomitant]
     Indication: INSOMNIA
     Dosage: 1 DF, 1X/DAY
     Route: 048
     Dates: start: 20070620, end: 20070814
  6. HEPT-A-MYL [Concomitant]
     Indication: ORTHOSTATIC HYPOTENSION
     Dosage: 6 DF, 1X/DAY
     Route: 048
     Dates: start: 20070701
  7. LEXOMIL [Concomitant]
     Indication: ANXIETY
     Dosage: 0.5 DF, 1X/DAY
     Route: 048
     Dates: start: 20070815
  8. GRANOCYTE [Concomitant]
     Indication: NEUTROPENIA
     Dosage: 1 DF, 1X/DAY
     Route: 058
     Dates: start: 20070820, end: 20070825
  9. ZOPHREN [Concomitant]
     Indication: NAUSEA
     Dosage: 2 DF, 1X/DAY
     Route: 048
     Dates: start: 20070815, end: 20070819
  10. RHINADVIL [Concomitant]
     Indication: RHINITIS
     Dosage: UNK
     Route: 048
     Dates: start: 20070801

REACTIONS (3)
  - GENERAL PHYSICAL HEALTH DETERIORATION [None]
  - LOSS OF CONSCIOUSNESS [None]
  - MALAISE [None]
